FAERS Safety Report 12375669 (Version 1)
Quarter: 2016Q2

REPORT INFORMATION
  Report Type: Report from Study
  Country: US (occurrence: US)
  Receive Date: 20160517
  Receipt Date: 20160517
  Transmission Date: 20160815
  Serious: Yes (Other)
  Sender: FDA-Public Use
  Company Number: US-BAYER-2016-084054

PATIENT
  Age: 59 Year
  Sex: Male

DRUGS (1)
  1. STIVARGA [Suspect]
     Active Substance: REGORAFENIB
     Indication: COLORECTAL CANCER
     Dosage: 120 MG, QD
     Route: 048
     Dates: start: 20160418, end: 20160505

REACTIONS (6)
  - Palmar-plantar erythrodysaesthesia syndrome [Not Recovered/Not Resolved]
  - Grip strength decreased [None]
  - Headache [None]
  - Fatigue [None]
  - Gait disturbance [None]
  - Nausea [None]

NARRATIVE: CASE EVENT DATE: 20160418
